FAERS Safety Report 4655851-5 (Version None)
Quarter: 2005Q2

REPORT INFORMATION
  Report Type: 
  Country: None (occurrence: None)
  Receive Date: 20050506
  Receipt Date: 20050506
  Transmission Date: 20051028
  Serious: Yes (Death)
  Sender: FDA-Public Use
  Company Number: None

PATIENT
  Sex: Female
  Weight: 59 kg

DRUGS (8)
  1. GAMMAGARD S/D [Suspect]
     Indication: THROMBOCYTOPENIA
     Dosage: 65 GRAMS   DAILY X 2  INTRAVENOUS
     Route: 042
     Dates: start: 20050105, end: 20050105
  2. OXYCONTIN [Concomitant]
  3. SINGULAIR [Concomitant]
  4. ZOLOFT [Concomitant]
  5. PROTONIX [Concomitant]
  6. PREDNISONE [Concomitant]
  7. AMBIEN [Concomitant]
  8. LASIX [Concomitant]

REACTIONS (9)
  - ACUTE MYOCARDIAL INFARCTION [None]
  - BLOOD PRESSURE IMMEASURABLE [None]
  - CARDIAC ARREST [None]
  - CEREBROVASCULAR ACCIDENT [None]
  - COMMUNICATION DISORDER [None]
  - ELECTROCARDIOGRAM ST SEGMENT ELEVATION [None]
  - FLUID OVERLOAD [None]
  - SPEECH DISORDER [None]
  - THROMBOSIS [None]
